FAERS Safety Report 8223262-1 (Version None)
Quarter: 2012Q1

REPORT INFORMATION
  Report Type: 
  Country: None (occurrence: None)
  Receive Date: 20120321
  Receipt Date: 20120302
  Transmission Date: 20120608
  Serious: Yes (Other)
  Sender: FDA-Public Use
  Company Number: AR-ROCHE-1019143

PATIENT
  Sex: Female

DRUGS (2)
  1. LUCENTIS [Suspect]
     Dates: start: 20110801
  2. LUCENTIS [Suspect]
     Indication: MACULOPATHY
     Dosage: DOSE:4 AMPULES IN 1 EYE AND 6 IN OTHER EYE
     Route: 050

REACTIONS (3)
  - DEMENTIA ALZHEIMER'S TYPE [None]
  - VISUAL IMPAIRMENT [None]
  - CONDITION AGGRAVATED [None]
